FAERS Safety Report 12636524 (Version 1)
Quarter: 2016Q3

REPORT INFORMATION
  Report Type: Spontaneous
  Country: US (occurrence: US)
  Receive Date: 20160809
  Receipt Date: 20160809
  Transmission Date: 20161109
  Serious: No
  Sender: FDA-Public Use
  Company Number: US-BAYER-2016-147101

PATIENT
  Age: 67 Year
  Sex: Female
  Weight: 53.52 kg

DRUGS (2)
  1. ALEVE [Suspect]
     Active Substance: NAPROXEN SODIUM
     Indication: ANALGESIC THERAPY
     Dosage: 1 DF, QD, WITH FOOD
     Dates: start: 20160723
  2. ADVIL [Concomitant]
     Active Substance: IBUPROFEN
     Indication: BACK PAIN
     Dosage: 2 DF, QID
     Route: 048
     Dates: start: 2016, end: 20160719

REACTIONS (1)
  - Nausea [None]

NARRATIVE: CASE EVENT DATE: 20160723
